FAERS Safety Report 8535207-5 (Version None)
Quarter: 2012Q3

REPORT INFORMATION
  Report Type: 
  Country: None (occurrence: None)
  Receive Date: 20120724
  Receipt Date: 20120709
  Transmission Date: 20120928
  Serious: Yes (Hospitalization)
  Sender: FDA-Public Use
  Company Number: NL-B.I. PHARMACEUTICALS,INC./RIDGEFIELD-2012-RD-00363EU

PATIENT
  Sex: Male
  Weight: 100 kg

DRUGS (13)
  1. SYMBICORT [Concomitant]
     Indication: CHRONIC OBSTRUCTIVE PULMONARY DISEASE
     Dosage: 400 MCG
     Route: 055
     Dates: start: 20110929
  2. DIOVAN [Concomitant]
     Indication: HYPERTENSION
     Dosage: 160 MG
     Route: 048
  3. SPIRIVA [Concomitant]
     Indication: CHRONIC OBSTRUCTIVE PULMONARY DISEASE
     Dosage: 18 MCG
     Route: 055
  4. ISOSORBINE MONONITRAAT [Concomitant]
     Indication: ANGINA PECTORIS
     Dosage: 25 MG
     Route: 048
  5. TRAMADOL HYDROCHLORIDE [Concomitant]
     Indication: PAIN IN EXTREMITY
     Dosage: 100 MG
     Route: 048
  6. BI 1356 [Suspect]
     Indication: TYPE 2 DIABETES MELLITUS
     Dosage: 5 MG
     Dates: start: 20111116
  7. CRESTOR [Concomitant]
     Indication: MYOCARDIAL INFARCTION
     Dosage: 10 MG
     Route: 048
  8. ALENDRONINEZUUR [BISPHOSPHONATE] [Concomitant]
     Indication: OSTEOPOROSIS
     Dosage: 70 MG
     Route: 048
  9. KEPPRA [Concomitant]
     Indication: EPILEPSY
     Dosage: 1000 MG
     Route: 048
  10. FUROSEMIDE [Concomitant]
     Indication: CARDIAC FAILURE
     Dosage: 40 MG
     Route: 048
     Dates: start: 20120125
  11. ESOMEPRAZOLE MAGNESIUM [Concomitant]
     Indication: PROPHYLAXIS AGAINST GASTROINTESTINAL ULCER
     Dosage: 20 MG
     Route: 048
     Dates: end: 20120608
  12. ISORDIL [Concomitant]
     Indication: ANGINA PECTORIS
     Dosage: 5 MG
     Route: 048
  13. TRAMADOL HCL [Concomitant]
     Indication: PAIN IN EXTREMITY
     Dosage: 75 MG
     Route: 048
     Dates: start: 20111003

REACTIONS (5)
  - MELAENA [None]
  - MYOCARDIAL ISCHAEMIA [None]
  - DYSPNOEA EXERTIONAL [None]
  - CHEST PAIN [None]
  - FATIGUE [None]
